FAERS Safety Report 5396119-1 (Version None)
Quarter: 2007Q3

REPORT INFORMATION
  Report Type: 
  Country: None (occurrence: None)
  Receive Date: 20070718
  Receipt Date: 20061102
  Transmission Date: 20080115
  Serious: Yes (Hospitalization)
  Sender: FDA-Public Use
  Company Number: 2006136714

PATIENT
  Age: 76 Year
  Sex: Female

DRUGS (1)
  1. CELEBREX [Suspect]
     Indication: ARTHRALGIA
     Dosage: 200 MG (200 MG,1 IN 1 D),ORAL
     Route: 048
     Dates: start: 20061011, end: 20061016

REACTIONS (1)
  - CARDIAC FAILURE CONGESTIVE [None]
